FAERS Safety Report 5098102-2 (Version None)
Quarter: 2006Q3

REPORT INFORMATION
  Report Type: 
  Country: None (occurrence: None)
  Receive Date: 20060907
  Receipt Date: 20060508
  Transmission Date: 20061208
  Serious: Yes (Hospitalization, Other)
  Sender: FDA-Public Use
  Company Number: PHEH2006US06084

PATIENT
  Age: 76 Year
  Sex: Male

DRUGS (3)
  1. LESCOL [Suspect]
     Indication: BLOOD CHOLESTEROL INCREASED
     Dosage: UNK, QD
     Route: 048
     Dates: end: 20051201
  2. VYTORIN [Suspect]
  3. ACTOS /USA/ [Concomitant]
     Indication: DIABETES MELLITUS

REACTIONS (8)
  - ASTHENIA [None]
  - BLOOD GLUCOSE INCREASED [None]
  - CEREBROVASCULAR ACCIDENT [None]
  - DIABETES MELLITUS [None]
  - DIZZINESS [None]
  - DYSPNOEA [None]
  - NEUROPATHY PERIPHERAL [None]
  - ROAD TRAFFIC ACCIDENT [None]
